FAERS Safety Report 21349764 (Version 1)
Quarter: 2022Q3

REPORT INFORMATION
  Report Type: Spontaneous
  Country: ES (occurrence: ES)
  Receive Date: 20220919
  Receipt Date: 20220919
  Transmission Date: 20221026
  Serious: Yes (Disabling)
  Sender: FDA-Public Use
  Company Number: None

PATIENT
  Age: 62 Year
  Sex: Male
  Weight: 88 kg

DRUGS (1)
  1. PRAMIPEXOLE [Suspect]
     Active Substance: PRAMIPEXOLE
     Indication: Restless legs syndrome
     Dosage: 1 DOSAGE FORM, QD (1 COMPRIMIDO AL D?A POR LA NOCHE )
     Route: 048
     Dates: start: 2020, end: 20220829

REACTIONS (3)
  - Intestinal obstruction [Not Recovered/Not Resolved]
  - Product residue present [Not Recovered/Not Resolved]
  - Product residue present [Not Recovered/Not Resolved]

NARRATIVE: CASE EVENT DATE: 20220820
